FAERS Safety Report 15788184 (Version 2)
Quarter: 2019Q1

REPORT INFORMATION
  Report Type: Report from Study
  Country: US (occurrence: US)
  Receive Date: 20190104
  Receipt Date: 20190109
  Transmission Date: 20190417
  Serious: No
  Sender: FDA-Public Use
  Company Number: PHEH2018US055274

PATIENT
  Sex: Female

DRUGS (1)
  1. ILARIS [Suspect]
     Active Substance: CANAKINUMAB
     Indication: FAMILIAL AMYLOIDOSIS
     Dosage: 150 MG, Q4W
     Route: 058

REACTIONS (2)
  - Malaise [Unknown]
  - Product use in unapproved indication [Unknown]
